FAERS Safety Report 26157322 (Version 1)
Quarter: 2025Q4

REPORT INFORMATION
  Report Type: Spontaneous
  Country: US (occurrence: None)
  Receive Date: 20251212
  Receipt Date: 20251212
  Transmission Date: 20260117
  Serious: Yes (Disabling)
  Sender: FDA-CTU
  Company Number: None

PATIENT
  Age: 42 Year
  Sex: Male

DRUGS (1)
  1. FLUTICASONE PROPIONATE [Suspect]
     Active Substance: FLUTICASONE PROPIONATE
     Dosage: OTHER STRENGTH : MCG;?FREQUENCY : TWICE A DAY;?OTHER ROUTE : NASAL SPRAY;
     Route: 045

REACTIONS (1)
  - Epistaxis [None]

NARRATIVE: CASE EVENT DATE: 20251201
